FAERS Safety Report 7169234-X (Version None)
Quarter: 2010Q4

REPORT INFORMATION
  Report Type: 
  Country: None (occurrence: None)
  Receive Date: 20101216
  Receipt Date: 20100120
  Transmission Date: 20110411
  Serious: No
  Sender: FDA-Public Use
  Company Number: US-AMGEN-KDL387020

PATIENT

DRUGS (3)
  1. ENBREL [Suspect]
     Indication: RHEUMATOID ARTHRITIS
     Dosage: 25 MG, 2 TIMES/WK
     Route: 058
     Dates: start: 20030505
  2. LEFLUNOMIDE [Concomitant]
     Dosage: 10 MG, QOD
     Route: 048
  3. METHOTREXATE [Concomitant]

REACTIONS (2)
  - INFECTION [None]
  - INJECTION SITE HAEMATOMA [None]
